FAERS Safety Report 5112665-X (Version None)
Quarter: 2006Q3

REPORT INFORMATION
  Report Type: 
  Country: None (occurrence: None)
  Receive Date: 20060920
  Receipt Date: 20060920
  Transmission Date: 20061208
  Serious: Yes (Hospitalization)
  Sender: FDA-Public Use
  Company Number: None

PATIENT
  Sex: Female
  Weight: 83 kg

DRUGS (2)
  1. IMATINIB MESYLATE-NOVARTIS [Suspect]
     Indication: METASTATIC RENAL CELL CARCINOMA
     Dosage: 100 MG 6XD, ORAL
     Route: 048
     Dates: start: 20060505, end: 20060623
  2. RAD001-NOVARTIS [Suspect]
     Indication: METASTATIC RENAL CELL CARCINOMA
     Dosage: 2.5 MG QD, ORAL
     Route: 048
     Dates: start: 20060505, end: 20060623

REACTIONS (5)
  - NAUSEA [None]
  - PNEUMONITIS [None]
  - PULMONARY TOXICITY [None]
  - UPPER RESPIRATORY TRACT INFECTION [None]
  - VOMITING [None]
